FAERS Safety Report 4928444-X (Version None)
Quarter: 2006Q1

REPORT INFORMATION
  Report Type: 
  Country: None (occurrence: None)
  Receive Date: 20060223
  Receipt Date: 20060209
  Transmission Date: 20060701
  Serious: Yes (Other)
  Sender: FDA-Public Use
  Company Number: B0411800A

PATIENT
  Age: 55 Year
  Sex: Female

DRUGS (1)
  1. LAMICTAL [Suspect]
     Indication: AFFECTIVE DISORDER

REACTIONS (2)
  - CONDITION AGGRAVATED [None]
  - TOURETTE'S DISORDER [None]
